FAERS Safety Report 16285256 (Version 1)
Quarter: 2019Q2

REPORT INFORMATION
  Report Type: Spontaneous
  Country: US (occurrence: US)
  Receive Date: 20190508
  Receipt Date: 20190508
  Transmission Date: 20190711
  Serious: Yes (Hospitalization, Other)
  Sender: FDA-Public Use
  Company Number: US-AMGEN-USASP2019070187

PATIENT
  Sex: Female

DRUGS (1)
  1. PROLIA [Suspect]
     Active Substance: DENOSUMAB
     Indication: OSTEOPOROSIS
     Dosage: 60 MILLIGRAM
     Route: 065
     Dates: start: 2019

REACTIONS (4)
  - Tonsillar haemorrhage [Unknown]
  - Pharyngeal swelling [Unknown]
  - Localised infection [Unknown]
  - Pharyngeal operation [Unknown]
